FAERS Safety Report 8552810-7 (Version None)
Quarter: 2012Q3

REPORT INFORMATION
  Report Type: 
  Country: None (occurrence: None)
  Receive Date: 20120731
  Receipt Date: 20120725
  Transmission Date: 20120928
  Serious: Yes (Other)
  Sender: FDA-Public Use
  Company Number: PHHY2011AU111849

PATIENT
  Sex: Female

DRUGS (6)
  1. ZOLEDRONOC ACID [Suspect]
     Indication: OSTEOPOROSIS
     Dosage: 5 MG, YEARLY
     Route: 042
     Dates: start: 20110727
  2. PREDNISONE [Concomitant]
     Indication: ASTHMA
     Dosage: 5 MG, DAILY
  3. MOBIC [Concomitant]
     Indication: FIBROMYALGIA
     Dosage: UNK UKN, UNK
  4. PANTOPRAZOLE [Concomitant]
     Indication: GASTROOESOPHAGEAL REFLUX DISEASE
     Dosage: 40 MG, BID
  5. ZOLEDRONOC ACID [Suspect]
     Dosage: 5 MG,
     Route: 042
     Dates: start: 20120725
  6. ENDEP [Concomitant]
     Indication: FIBROMYALGIA
     Dosage: 50 MG, DAILY

REACTIONS (6)
  - VIRAL INFECTION [None]
  - SPINAL FRACTURE [None]
  - RIB FRACTURE [None]
  - ARTHRALGIA [None]
  - CHRONIC OBSTRUCTIVE PULMONARY DISEASE [None]
  - MUSCULOSKELETAL PAIN [None]
